FAERS Safety Report 9797766 (Version 1)
Quarter: 2014Q1

REPORT INFORMATION
  Report Type: Report from Study
  Country: ES (occurrence: ES)
  Receive Date: 20140106
  Receipt Date: 20140106
  Transmission Date: 20141002
  Serious: Yes (Death, Other)
  Sender: FDA-Public Use
  Company Number: ES-ROCHE-1327440

PATIENT
  Sex: 0

DRUGS (4)
  1. MYCOPHENOLATE MOFETIL [Suspect]
     Indication: PROPHYLAXIS AGAINST GRAFT VERSUS HOST DISEASE
     Dosage: 1 G EVERY 8-12 H .
     Route: 048
  2. MYCOPHENOLATE MOFETIL [Suspect]
     Dosage: 15 MG/KG EVERY 8-12 H
     Route: 042
  3. CYCLOSPORINE [Suspect]
     Indication: PROPHYLAXIS AGAINST GRAFT VERSUS HOST DISEASE
     Dosage: 1 MG/KG/DAY INTRAVENOUSLY FROM DAYS -7 TO -2, AND THEN 3 MG/KG/DAY INTRAVENOUSLY.
     Route: 042
  4. CYCLOSPORINE [Suspect]
     Route: 048

REACTIONS (6)
  - Septic shock [Fatal]
  - Cytomegalovirus infection [Fatal]
  - Fungal infection [Fatal]
  - Adenovirus infection [Fatal]
  - Gastrointestinal toxicity [Unknown]
  - Thrombotic microangiopathy [Unknown]
